FAERS Safety Report 16578283 (Version 1)
Quarter: 2019Q3

REPORT INFORMATION
  Report Type: Spontaneous
  Country: NO (occurrence: NO)
  Receive Date: 20190716
  Receipt Date: 20190716
  Transmission Date: 20191004
  Serious: Yes (Other)
  Sender: FDA-Public Use
  Company Number: PHHY2019NO162955

PATIENT
  Age: 6 Year
  Sex: Female

DRUGS (1)
  1. CETIRIZINE SANDOZ [Suspect]
     Active Substance: CETIRIZINE HYDROCHLORIDE
     Indication: ARTHROPOD STING
     Dosage: UNK (0.5 TABLET INTERMITTENTLY FOR APPROXIMATELY 3 WEEKS)
     Route: 048
     Dates: start: 201906, end: 201906

REACTIONS (1)
  - Muscle spasms [Recovered/Resolved]

NARRATIVE: CASE EVENT DATE: 20190628
